FAERS Safety Report 8878785 (Version 2)
Quarter: 2012Q4

REPORT INFORMATION
  Report Type: 
  Country: US (occurrence: US)
  Receive Date: 20121026
  Receipt Date: 20121231
  Transmission Date: 20130627
  Serious: Yes (Other)
  Sender: FDA-Public Use
  Company Number: US-ROCHE-1148894

PATIENT
  Age: 13 Year
  Sex: Male
  Weight: 70.37 kg

DRUGS (5)
  1. ACCUTANE [Suspect]
     Indication: ACNE
     Route: 048
     Dates: start: 1999, end: 2001
  2. ACCUTANE [Suspect]
     Route: 048
     Dates: start: 200102, end: 20020903
  3. ACCUTANE [Suspect]
     Route: 048
     Dates: start: 20030128, end: 20041103
  4. ACCUTANE [Suspect]
     Route: 048
     Dates: start: 20050201, end: 2006
  5. AMNESTEEM [Suspect]
     Indication: ACNE
     Route: 065
     Dates: start: 20050315

REACTIONS (5)
  - Inflammatory bowel disease [Unknown]
  - Irritable bowel syndrome [Unknown]
  - Dry skin [Unknown]
  - Blood alkaline phosphatase increased [Unknown]
  - Pharyngitis [Unknown]
